FAERS Safety Report 8552731-X (Version None)
Quarter: 2012Q3

REPORT INFORMATION
  Report Type: 
  Country: None (occurrence: None)
  Receive Date: 20120731
  Receipt Date: 20120724
  Transmission Date: 20120928
  Serious: Yes (Other)
  Sender: FDA-Public Use
  Company Number: PHHY2012IN064515

PATIENT

DRUGS (2)
  1. TENOFOVIR DISOPROXIL FUMARATE [Concomitant]
  2. SEBIVO [Suspect]
     Indication: HEPATITIS B
     Dosage: 400 MG
     Route: 048
     Dates: start: 20120710, end: 20120714

REACTIONS (2)
  - MUSCULAR WEAKNESS [None]
  - WEIGHT DECREASED [None]
